FAERS Safety Report 5496425-6 (Version None)
Quarter: 2007Q4

REPORT INFORMATION
  Report Type: 
  Country: None (occurrence: None)
  Receive Date: 20071012
  Receipt Date: 20071012
  Transmission Date: 20080405
  Serious: No
  Sender: FDA-Public Use
  Company Number: None

PATIENT
  Age: 53 Year
  Sex: Male

DRUGS (2)
  1. COLGATE [Suspect]
     Indication: DENTAL CARIES
     Dosage: 1X/DAY PO
     Route: 048
     Dates: start: 20071001, end: 20071011
  2. COLGATE [Suspect]
     Indication: PROPHYLAXIS
     Dosage: 1X/DAY PO
     Route: 048
     Dates: start: 20071001, end: 20071011

REACTIONS (2)
  - ORAL DISCOMFORT [None]
  - ORAL MUCOSAL EXFOLIATION [None]
